FAERS Safety Report 25864367 (Version 5)
Quarter: 2025Q4

REPORT INFORMATION
  Report Type: Spontaneous
  Country: RU (occurrence: RU)
  Receive Date: 20250930
  Receipt Date: 20251105
  Transmission Date: 20260117
  Serious: Yes (Hospitalization, Other)
  Sender: ASTELLAS
  Company Number: RU-ASTELLAS-2025-AER-053154

PATIENT
  Age: 78 Year
  Sex: Male

DRUGS (8)
  1. XTANDI [Suspect]
     Active Substance: ENZALUTAMIDE
     Indication: Prostate cancer
     Dosage: 160 MG PER DAY
     Route: 048
     Dates: start: 20250925, end: 2025
  2. XTANDI [Suspect]
     Active Substance: ENZALUTAMIDE
     Dosage: RESUMED
     Route: 048
     Dates: start: 2025
  3. TRANEXAMIC ACID [Suspect]
     Active Substance: TRANEXAMIC ACID
     Indication: Blood urine present
     Route: 065
  4. NETTLE [Suspect]
     Active Substance: URTICA DIOICA POLLEN
     Indication: Blood urine present
     Route: 065
  5. TAMSULOSIN [Concomitant]
     Active Substance: TAMSULOSIN
     Indication: Product used for unknown indication
     Route: 065
  6. LISINOPRIL [Concomitant]
     Active Substance: LISINOPRIL
     Indication: Hypertension
     Route: 065
  7. BISOPROLOL [Concomitant]
     Active Substance: BISOPROLOL
     Indication: Product used for unknown indication
     Route: 065
  8. CARDIOMAGNYL [Concomitant]
     Active Substance: ASPIRIN\MAGNESIUM HYDROXIDE
     Indication: Product used for unknown indication
     Route: 065

REACTIONS (10)
  - Hallucination, visual [Recovered/Resolved]
  - Angina pectoris [Unknown]
  - Blood pressure fluctuation [Unknown]
  - Off label use [Unknown]
  - Asthenia [Not Recovered/Not Resolved]
  - Hypotension [Not Recovered/Not Resolved]
  - Dizziness [Not Recovered/Not Resolved]
  - Malaise [Not Recovered/Not Resolved]
  - Dysarthria [Unknown]
  - Bone pain [Unknown]

NARRATIVE: CASE EVENT DATE: 20250925
